FAERS Safety Report 4683495-8 (Version None)
Quarter: 2005Q2

REPORT INFORMATION
  Report Type: 
  Country: None (occurrence: None)
  Receive Date: 20050602
  Receipt Date: 20050307
  Transmission Date: 20051028
  Serious: No
  Sender: FDA-Public Use
  Company Number: 200510009BWH

PATIENT
  Age: 75 Year
  Sex: Male
  Weight: 95.2554 kg

DRUGS (20)
  1. LEVITRA [Suspect]
     Indication: ERECTILE DYSFUNCTION
     Dosage: SEE IMAGE
     Route: 048
     Dates: start: 20041215
  2. LEVITRA [Suspect]
     Indication: ERECTILE DYSFUNCTION
     Dosage: SEE IMAGE
     Route: 048
     Dates: start: 20041229
  3. LEVITRA [Suspect]
     Indication: ERECTILE DYSFUNCTION
     Dosage: SEE IMAGE
     Route: 048
     Dates: start: 20041230
  4. ZICAM [Concomitant]
  5. RESTASIS [Concomitant]
  6. PATANOL [Concomitant]
  7. LEVOXYL [Concomitant]
  8. TESTOSTERONE [Concomitant]
  9. CELEBREX [Concomitant]
  10. CLONOPIN [Concomitant]
  11. HYDROCODONE BITARTRATE [Concomitant]
  12. LIPITOR [Concomitant]
  13. PRILOSEC [Concomitant]
  14. BECONASE [Concomitant]
  15. ULTRAM [Concomitant]
  16. PROVIGIL [Concomitant]
  17. DETROL [Concomitant]
  18. LAC-HYDRIN [Concomitant]
  19. CARMOL [Concomitant]
  20. PENLAC [Concomitant]

REACTIONS (1)
  - ERECTILE DYSFUNCTION [None]
